FAERS Safety Report 7200890-3 (Version None)
Quarter: 2010Q4

REPORT INFORMATION
  Report Type: 
  Country: None (occurrence: None)
  Receive Date: 20101228
  Receipt Date: 20101222
  Transmission Date: 20110411
  Serious: Yes (Hospitalization, Other)
  Sender: FDA-Public Use
  Company Number: DE-ABBOTT-10P-062-0674899-00

PATIENT
  Sex: Male
  Weight: 66 kg

DRUGS (17)
  1. ZEMPLAR [Suspect]
     Indication: PRODUCT USED FOR UNKNOWN INDICATION
     Dosage: I. V. , 5UG PER WEEK
     Dates: start: 20091211
  2. CALCITRIOL [Concomitant]
     Indication: PRODUCT USED FOR UNKNOWN INDICATION
     Dosage: I.V. AND ORAL 10MCG PER WEEK
  3. CHOLECALCIFEROL [Concomitant]
     Indication: PRODUCT USED FOR UNKNOWN INDICATION
  4. CALCIUM FORTE [Concomitant]
     Indication: PRODUCT USED FOR UNKNOWN INDICATION
     Dosage: ORAL FIVE TIMES 500MG PER WEEK
     Route: 048
  5. FERRLECIT [Concomitant]
     Indication: PRODUCT USED FOR UNKNOWN INDICATION
     Dosage: I. V. , 31.25MG PER WEEK
     Route: 042
  6. DECOSTRIOL [Concomitant]
     Indication: PRODUCT USED FOR UNKNOWN INDICATION
  7. TORASEMID 1A PHARMA [Concomitant]
     Indication: PRODUCT USED FOR UNKNOWN INDICATION
     Dosage: 100MG DAILY
  8. IMODIUM [Concomitant]
     Indication: PRODUCT USED FOR UNKNOWN INDICATION
  9. DEKRISTOL [Concomitant]
     Indication: PRODUCT USED FOR UNKNOWN INDICATION
     Dosage: 20000 I.E.  1 CAPSULE, EOW
  10. ROCALTROL [Concomitant]
     Indication: PRODUCT USED FOR UNKNOWN INDICATION
     Dosage: 1 MICROGAM DAILY
  11. FOLIC ACID LOMAPHARM [Concomitant]
     Indication: PRODUCT USED FOR UNKNOWN INDICATION
     Dosage: 5MG DAILY
  12. CREON [Concomitant]
     Indication: PRODUCT USED FOR UNKNOWN INDICATION
  13. ASTONIN H [Concomitant]
     Indication: PRODUCT USED FOR UNKNOWN INDICATION
     Dosage: OPD
  14. NOVORAPID NOVOLET [Concomitant]
     Indication: PRODUCT USED FOR UNKNOWN INDICATION
     Dosage: 100E/MI TID
  15. CALCIUM SANDOZ FORTE [Concomitant]
     Indication: PRODUCT USED FOR UNKNOWN INDICATION
     Dosage: EFFERVESCENT TABLET, 3 TIMES 1 TABLET
  16. MAGNETRANS EXTRA [Concomitant]
     Indication: PRODUCT USED FOR UNKNOWN INDICATION
     Dosage: 3 TIMES 1 CAPSULE
  17. BICANORM [Concomitant]
     Indication: PRODUCT USED FOR UNKNOWN INDICATION
     Dosage: ENTERIC-COATED,3 TIMES1 ON DIALYSIS FREE DAYS : ON DIALYSIS DAY 1 IN EVENING

REACTIONS (5)
  - ANAL HAEMORRHAGE [None]
  - GASTRIC POLYPS [None]
  - GASTROINTESTINAL TRACT ADENOMA [None]
  - INTESTINAL POLYP [None]
  - REFLUX OESOPHAGITIS [None]
